FAERS Safety Report 15073331 (Version 1)
Quarter: 2018Q2

REPORT INFORMATION
  Report Type: Spontaneous
  Country: DE (occurrence: DE)
  Receive Date: 20180627
  Receipt Date: 20180627
  Transmission Date: 20180711
  Serious: Yes (Hospitalization)
  Sender: FDA-Public Use
  Company Number: PHHY2018DE028873

PATIENT
  Age: 79 Year
  Sex: Male

DRUGS (2)
  1. METOPROLOLSUCCINAT 1A PHARMA [Suspect]
     Active Substance: METOPROLOL SUCCINATE
     Indication: HYPERTENSION
     Dosage: 47.5 MG, QD
     Route: 065
     Dates: start: 2016, end: 2018
  2. ASPIRIN. [Concomitant]
     Active Substance: ASPIRIN
     Indication: POST PROCEDURAL COMPLICATION
     Dosage: 100 MG, UNK
     Route: 065
     Dates: start: 2016

REACTIONS (2)
  - Arrhythmia [Unknown]
  - Concomitant disease aggravated [Unknown]
